FAERS Safety Report 5029544-9 (Version None)
Quarter: 2006Q2

REPORT INFORMATION
  Report Type: 
  Country: None (occurrence: None)
  Receive Date: 20060620
  Receipt Date: 20060601
  Transmission Date: 20061013
  Serious: Yes (Other)
  Sender: FDA-Public Use
  Company Number: PHBS2006KR08290

PATIENT

DRUGS (1)
  1. TEGRETOL [Suspect]
     Indication: MUSCLE SPASMS
     Route: 048

REACTIONS (1)
  - CONVULSION [None]
